FAERS Safety Report 5443649-X (Version None)
Quarter: 2007Q3

REPORT INFORMATION
  Report Type: 
  Country: None (occurrence: None)
  Receive Date: 20070905
  Receipt Date: 20070829
  Transmission Date: 20080115
  Serious: Yes (Hospitalization)
  Sender: FDA-Public Use
  Company Number: US-SANOFI-SYNTHELABO-F03200700170

PATIENT
  Age: 713 Month
  Sex: Male
  Weight: 72.3 kg

DRUGS (3)
  1. OXALIPLATIN [Suspect]
     Indication: COLORECTAL CANCER METASTATIC
     Dosage: 85 MG/M2, 330MG IN 500 ML 5% DEXTROSE IN WATER OVER 120 MINUTES ON DAYS 1 AND 15 EVERY 28 DAYS
     Route: 042
     Dates: start: 20070716, end: 20070716
  2. IRINOTECAN HCL [Suspect]
     Indication: COLORECTAL CANCER METASTATIC
     Dosage: 150 MG/M2, 582 MG 90 MINUTE INFUSION ON DAYS 1 AND 15 EVERY 28 DAYS
     Route: 042
     Dates: start: 20070716, end: 20070716
  3. BEVACIZUMAB [Suspect]
     Indication: COLORECTAL CANCER METASTATIC
     Dosage: 5 MG/KG, 369 MG INFUSION OVER 90 MINUTES ON DAYS 1 AND 15 EVERY 28 DAYS
     Route: 042
     Dates: start: 20070702, end: 20070702

REACTIONS (2)
  - GASTROINTESTINAL HAEMORRHAGE [None]
  - OESOPHAGITIS [None]
